FAERS Safety Report 17218748 (Version 2)
Quarter: 2020Q1

REPORT INFORMATION
  Report Type: Spontaneous
  Country: TR (occurrence: TR)
  Receive Date: 20191231
  Receipt Date: 20200103
  Transmission Date: 20200409
  Serious: Yes (Other)
  Sender: FDA-Public Use
  Company Number: TR-JNJFOC-20191247480

PATIENT
  Age: 72 Year
  Sex: Male

DRUGS (2)
  1. RIVAROXABAN [Suspect]
     Active Substance: RIVAROXABAN
     Indication: PRODUCT USED FOR UNKNOWN INDICATION
     Dosage: 15 MG, QD
     Route: 048
  2. RIVAROXABAN [Suspect]
     Active Substance: RIVAROXABAN
     Dosage: XARELTO 20 MG
     Route: 048

REACTIONS (3)
  - Dizziness [Recovered/Resolved]
  - Renal impairment [Not Recovered/Not Resolved]
  - Headache [Recovered/Resolved]
